FAERS Safety Report 17936427 (Version 2)
Quarter: 2020Q3

REPORT INFORMATION
  Report Type: Spontaneous
  Country: US (occurrence: US)
  Receive Date: 20200624
  Receipt Date: 20200710
  Transmission Date: 20201103
  Serious: No
  Sender: FDA-Public Use
  Company Number: US-009507513-2006USA006948

PATIENT
  Sex: Male

DRUGS (1)
  1. ASMANEX [Suspect]
     Active Substance: MOMETASONE FUROATE
     Indication: CHRONIC OBSTRUCTIVE PULMONARY DISEASE
     Dosage: 1 PUFF ORALLY DAILY
     Route: 055
     Dates: start: 201806

REACTIONS (5)
  - Chronic obstructive pulmonary disease [Not Recovered/Not Resolved]
  - Product quality issue [Unknown]
  - Product use in unapproved indication [Unknown]
  - Dyspnoea [Not Recovered/Not Resolved]
  - Poor quality device used [Unknown]

NARRATIVE: CASE EVENT DATE: 201806
